FAERS Safety Report 4534596-6 (Version None)
Quarter: 2004Q4

REPORT INFORMATION
  Report Type: 
  Country: None (occurrence: None)
  Receive Date: 20041214
  Receipt Date: 20041028
  Transmission Date: 20050328
  Serious: Yes (Other)
  Sender: FDA-Public Use
  Company Number: 2004242094US

PATIENT
  Age: 61 Year
  Sex: Male
  Weight: 81.6 kg

DRUGS (6)
  1. BEXTRA [Suspect]
     Indication: ARTHRALGIA
     Dosage: 10 MG, QD, ORAL
     Route: 048
     Dates: start: 20041026
  2. ALLEGRA [Concomitant]
  3. NEXIUM [Concomitant]
  4. MAXZIDE [Concomitant]
  5. LIPITOR [Concomitant]
  6. CARDURA [Concomitant]

REACTIONS (1)
  - BLOOD URINE PRESENT [None]
